FAERS Safety Report 15884340 (Version 1)
Quarter: 2019Q1

REPORT INFORMATION
  Report Type: Spontaneous
  Country: US (occurrence: US)
  Receive Date: 20190129
  Receipt Date: 20190129
  Transmission Date: 20190417
  Serious: No
  Sender: FDA-Public Use
  Company Number: US-PFIZER INC-2019035603

PATIENT
  Age: 55 Year
  Sex: Female
  Weight: 63 kg

DRUGS (2)
  1. PREMARIN [Suspect]
     Active Substance: ESTROGENS, CONJUGATED
     Dosage: UNK, ALTERNATE DAY
     Dates: end: 201812
  2. PREMARIN [Suspect]
     Active Substance: ESTROGENS, CONJUGATED
     Indication: HORMONE REPLACEMENT THERAPY
     Dosage: 0.625 MG, 1X/DAY
     Route: 048

REACTIONS (4)
  - Intentional product misuse [Unknown]
  - Anxiety [Unknown]
  - Mood altered [Not Recovered/Not Resolved]
  - Insomnia [Not Recovered/Not Resolved]
